FAERS Safety Report 9193988 (Version 1)
Quarter: 2013Q1

REPORT INFORMATION
  Report Type: Spontaneous
  Country: PT (occurrence: PT)
  Receive Date: 20130327
  Receipt Date: 20130327
  Transmission Date: 20140127
  Serious: Yes (Life-Threatening)
  Sender: FDA-Public Use
  Company Number: PT-GILEAD-2013-0072373

PATIENT
  Age: 57 Year
  Sex: Male

DRUGS (4)
  1. VIREAD [Suspect]
     Indication: CHRONIC HEPATITIS B
     Dosage: 245 MG, QD
     Route: 048
     Dates: start: 20130122, end: 20130306
  2. TERBINAFINA [Suspect]
     Indication: ONYCHOMYCOSIS
     Dosage: 250 MG, QD
     Route: 048
     Dates: start: 20121228, end: 20130306
  3. TRAZODONA [Concomitant]
     Indication: PRODUCT USED FOR UNKNOWN INDICATION
     Dates: start: 20120101
  4. LEXOTAN [Concomitant]
     Indication: CHRONIC HEPATITIS B
     Dosage: 3 MG, QD
     Dates: end: 20130306

REACTIONS (3)
  - Hepatocellular injury [Recovering/Resolving]
  - Rash pruritic [Recovering/Resolving]
  - Rash macular [Recovering/Resolving]
